FAERS Safety Report 14380911 (Version 1)
Quarter: 2018Q1

REPORT INFORMATION
  Report Type: Spontaneous
  Country: US (occurrence: US)
  Receive Date: 20180112
  Receipt Date: 20180112
  Transmission Date: 20180509
  Serious: No
  Sender: FDA-Public Use
  Company Number: US-ALKERMES INC.-ALK-2017-005007

PATIENT
  Age: 57 Year
  Sex: Female
  Weight: 68.27 kg

DRUGS (2)
  1. ARISTADA [Suspect]
     Active Substance: ARIPIPRAZOLE LAUROXIL
     Dosage: 882 MG, QMO
     Route: 030
     Dates: start: 20171117
  2. ARISTADA [Suspect]
     Active Substance: ARIPIPRAZOLE LAUROXIL
     Indication: SCHIZOPHRENIA
     Dosage: 441 MG, QMO
     Route: 030
     Dates: start: 201708, end: 20171116

REACTIONS (7)
  - Liquid product physical issue [Not Recovered/Not Resolved]
  - Drug ineffective [Unknown]
  - Needle issue [Not Recovered/Not Resolved]
  - Aggression [Unknown]
  - Middle insomnia [Unknown]
  - Restlessness [Unknown]
  - Lethargy [Unknown]

NARRATIVE: CASE EVENT DATE: 201709
